FAERS Safety Report 4563913-6 (Version None)
Quarter: 2005Q1

REPORT INFORMATION
  Report Type: 
  Country: None (occurrence: None)
  Receive Date: 20050128
  Receipt Date: 20050114
  Transmission Date: 20050727
  Serious: Yes (Other)
  Sender: FDA-Public Use
  Company Number: US-JNJFOC-20041004587

PATIENT
  Sex: Female
  Weight: 86.64 kg

DRUGS (13)
  1. REMICADE [Suspect]
     Indication: RHEUMATOID ARTHRITIS
     Route: 042
  2. ENBREL [Suspect]
     Indication: RHEUMATOID ARTHRITIS
  3. METHOTREXATE [Concomitant]
  4. ARAVA [Concomitant]
  5. VIOXX [Concomitant]
  6. PLAQUENIL [Concomitant]
     Route: 049
  7. TRAZADONE [Concomitant]
     Indication: INSOMNIA
  8. BEXTRA [Concomitant]
  9. FOLIC ACID [Concomitant]
  10. COREG [Concomitant]
  11. LOTENSIN [Concomitant]
  12. LASIX [Concomitant]
  13. POTASSIUM CHLORIDE [Concomitant]

REACTIONS (10)
  - BLOOD CHOLESTEROL INCREASED [None]
  - BRONCHITIS [None]
  - CARDIAC FAILURE CONGESTIVE [None]
  - CONGESTIVE CARDIOMYOPATHY [None]
  - DYSPNOEA EXERTIONAL [None]
  - HYPOAESTHESIA [None]
  - HYPOTENSION [None]
  - RHEUMATOID ARTHRITIS [None]
  - SYNOVITIS [None]
  - WEIGHT DECREASED [None]
